FAERS Safety Report 5473843-3 (Version None)
Quarter: 2007Q4

REPORT INFORMATION
  Report Type: 
  Country: None (occurrence: None)
  Receive Date: 20071001
  Receipt Date: 20070926
  Transmission Date: 20080405
  Serious: Yes (Death)
  Sender: FDA-Public Use
  Company Number: US-BAXTER-2007BH007872

PATIENT
  Age: 70 Year
  Sex: Male
  Weight: 83 kg

DRUGS (9)
  1. DURAMORPH PF [Suspect]
     Indication: PAIN
     Route: 037
     Dates: start: 20070917, end: 20070919
  2. VICODIN [Concomitant]
     Indication: PAIN
     Route: 048
     Dates: start: 20070918, end: 20070918
  3. OXYGEN [Concomitant]
     Indication: DRUG USE FOR UNKNOWN INDICATION
     Dosage: DOSE UNIT:UNKNOWN
     Route: 065
     Dates: end: 20070101
  4. INHALER [Concomitant]
     Indication: DRUG USE FOR UNKNOWN INDICATION
     Dosage: DOSE UNIT:UNKNOWN
     Route: 065
     Dates: end: 20070101
  5. DURAGESIC-100 [Concomitant]
     Indication: PAIN
     Route: 062
     Dates: start: 20070101, end: 20070101
  6. TRAMADOL HCL [Concomitant]
     Indication: PAIN
     Dosage: DOSE UNIT:UNKNOWN
     Route: 048
     Dates: start: 20070101, end: 20070101
  7. NORTRIPTYLINE HCL [Concomitant]
     Indication: PAIN
     Route: 048
     Dates: end: 20070101
  8. CLONIDINE [Concomitant]
     Indication: HYPERTENSION
     Route: 048
     Dates: end: 20070101
  9. TYLENOL (CAPLET) [Concomitant]
     Indication: PAIN
     Dosage: DOSE UNIT:UNKNOWN
     Route: 048
     Dates: end: 20070101

REACTIONS (1)
  - PULMONARY EMBOLISM [None]
